FAERS Safety Report 14021899 (Version 1)
Quarter: 2017Q3

REPORT INFORMATION
  Report Type: Spontaneous
  Country: US (occurrence: US)
  Receive Date: 20170928
  Receipt Date: 20170928
  Transmission Date: 20171128
  Serious: Yes (Hospitalization)
  Sender: FDA-Public Use
  Company Number: US-MYLANLABS-2017M1060232

PATIENT
  Age: 35 Year
  Sex: Female

DRUGS (2)
  1. TRANEXAMIC ACID. [Suspect]
     Active Substance: TRANEXAMIC ACID
     Dosage: 1-G INFUSION OVER 8 HOURS
     Route: 050
  2. TRANEXAMIC ACID. [Suspect]
     Active Substance: TRANEXAMIC ACID
     Indication: HAEMORRHAGE PROPHYLAXIS
     Dosage: 1G LOADING DOSE GIVEN OVER 10 MINUTES FOLLOWED BY A 1-G INFUSION
     Route: 040

REACTIONS (2)
  - Off label use [Recovered/Resolved]
  - Peripheral artery thrombosis [Recovered/Resolved]
